FAERS Safety Report 9276831 (Version 1)
Quarter: 2013Q2

REPORT INFORMATION
  Report Type: Spontaneous
  Country: JP (occurrence: JP)
  Receive Date: 20130507
  Receipt Date: 20130507
  Transmission Date: 20140414
  Serious: Yes (Hospitalization)
  Sender: FDA-Public Use
  Company Number: JP-BAXTER-2013BAX016265

PATIENT
  Sex: Female

DRUGS (2)
  1. DIANEAL-N PD-2 1.5 PD SOLUTION [Suspect]
     Indication: DIABETIC NEPHROPATHY
     Route: 033
     Dates: start: 20121001
  2. EXTRANEAL [Suspect]
     Indication: DIABETIC NEPHROPATHY
     Route: 033
     Dates: start: 20121001

REACTIONS (2)
  - Femur fracture [Recovered/Resolved]
  - Fall [Unknown]
